FAERS Safety Report 25278592 (Version 3)
Quarter: 2025Q3

REPORT INFORMATION
  Report Type: Spontaneous
  Country: CA (occurrence: CA)
  Receive Date: 20250507
  Receipt Date: 20250904
  Transmission Date: 20251020
  Serious: Yes (Other)
  Sender: PFIZER
  Company Number: CA-PFIZER INC-202500092929

PATIENT
  Age: 62 Year
  Sex: Female

DRUGS (4)
  1. CIBINQO [Suspect]
     Active Substance: ABROCITINIB
     Indication: Dermatitis atopic
     Dosage: 200 MG, 1X/DAY
     Route: 048
     Dates: start: 20250129
  2. CIBINQO [Suspect]
     Active Substance: ABROCITINIB
     Indication: Eczema
  3. BILASTINE [Concomitant]
     Active Substance: BILASTINE
     Indication: Dermatitis atopic
  4. DESONIDE [Concomitant]
     Active Substance: DESONIDE
     Indication: Dermatitis atopic

REACTIONS (9)
  - Nephrolithiasis [Unknown]
  - Appendicitis [Unknown]
  - Therapeutic product effect incomplete [Unknown]
  - Abdominal pain [Recovering/Resolving]
  - Condition aggravated [Not Recovered/Not Resolved]
  - Urinary tract infection [Unknown]
  - Oral herpes [Unknown]
  - Feeling abnormal [Unknown]
  - Stress [Unknown]

NARRATIVE: CASE EVENT DATE: 20250101
